FAERS Safety Report 24026945 (Version 1)
Quarter: 2024Q2

REPORT INFORMATION
  Report Type: Report from Study
  Country: IT (occurrence: IT)
  Receive Date: 20240628
  Receipt Date: 20240628
  Transmission Date: 20240716
  Serious: No
  Sender: FDA-Public Use
  Company Number: IT-ROCHE-3566700

PATIENT
  Age: 68 Year
  Sex: Female
  Weight: 82.0 kg

DRUGS (12)
  1. ALECTINIB [Suspect]
     Active Substance: ALECTINIB
     Indication: Lung cancer metastatic
     Route: 048
     Dates: start: 20230228
  2. LEVOTHYROXINE SODIUM [Concomitant]
     Active Substance: LEVOTHYROXINE SODIUM
  3. CANDESARTAN CILEXETIL\HYDROCHLOROTHIAZIDE [Concomitant]
     Active Substance: CANDESARTAN CILEXETIL\HYDROCHLOROTHIAZIDE
  4. CODEINE [Concomitant]
     Active Substance: CODEINE
  5. OMEPRAZOLE [Concomitant]
     Active Substance: DONEPEZIL HYDROCHLORIDE\OMEPRAZOLE\OMEPRAZOLE MAGNESIUM
  6. FUROSEMIDE\SPIRONOLACTONE [Concomitant]
     Active Substance: FUROSEMIDE\SPIRONOLACTONE
  7. MONTMORILLONITE [Concomitant]
     Active Substance: MONTMORILLONITE
  8. LOPERAMIDE [Concomitant]
     Active Substance: LOPERAMIDE
  9. RIFAMYCIN [Concomitant]
     Active Substance: RIFAMYCIN
  10. GENTAMICIN [Concomitant]
     Active Substance: GENTAMICIN
  11. CLOTRIMAZOLE [Concomitant]
     Active Substance: CLOTRIMAZOLE
  12. PREDNISONE [Concomitant]
     Active Substance: PREDNISONE

REACTIONS (1)
  - Asthenia [Not Recovered/Not Resolved]

NARRATIVE: CASE EVENT DATE: 20240327
